FAERS Safety Report 19962106 (Version 2)
Quarter: 2021Q4

REPORT INFORMATION
  Report Type: Other
  Country: GB (occurrence: GB)
  Receive Date: 20211018
  Receipt Date: 20211026
  Transmission Date: 20220303
  Serious: Yes (Other)
  Sender: FDA-Public Use
  Company Number: None

PATIENT

DRUGS (2)
  1. TOPIRAMATE [Suspect]
     Active Substance: TOPIRAMATE
     Indication: Migraine
     Dosage: 75 MILLIGRAM
     Route: 048
     Dates: start: 20210709, end: 20210827
  2. SUMATRIPTAN [Concomitant]
     Active Substance: SUMATRIPTAN
     Indication: Ill-defined disorder
     Dosage: UNK
     Route: 065

REACTIONS (8)
  - Adverse drug reaction [Recovered/Resolved]
  - Muscle discomfort [Recovered/Resolved]
  - Feeling of body temperature change [Recovered/Resolved]
  - Abnormal sensation in eye [Recovered/Resolved]
  - Formication [Recovered/Resolved]
  - Vision blurred [Recovered/Resolved]
  - Nausea [Recovered/Resolved]
  - Arthralgia [Recovered/Resolved]

NARRATIVE: CASE EVENT DATE: 20210715
